FAERS Safety Report 22315018 (Version 1)
Quarter: 2023Q2

REPORT INFORMATION
  Report Type: Spontaneous
  Country: US (occurrence: None)
  Receive Date: 20230511
  Receipt Date: 20230511
  Transmission Date: 20230721
  Serious: Yes (Other)
  Sender: FDA-Public Use
  Company Number: None

PATIENT
  Age: 49 Year
  Sex: Female
  Weight: 63 kg

DRUGS (8)
  1. MONTELUKAST SODIUM [Suspect]
     Active Substance: MONTELUKAST SODIUM
     Indication: Asthma
     Dosage: FREQUENCY : AT BEDTIME;?
     Route: 048
     Dates: start: 20230504, end: 20230510
  2. ADVAIR HFA [Concomitant]
     Active Substance: FLUTICASONE PROPIONATE\SALMETEROL XINAFOATE
  3. ALBUTEROL [Concomitant]
     Active Substance: ALBUTEROL
  4. desvenlefaxine [Concomitant]
  5. Mineral complex [Concomitant]
  6. MITOCHONDRIAL NRG [Concomitant]
  7. K3/D2 [Concomitant]
  8. OMEGA 3 [Concomitant]
     Active Substance: CAPSAICIN

REACTIONS (9)
  - Malaise [None]
  - Oropharyngeal pain [None]
  - Unevaluable event [None]
  - Chest discomfort [None]
  - Movement disorder [None]
  - Agitation [None]
  - Depression [None]
  - Fatigue [None]
  - Loss of personal independence in daily activities [None]

NARRATIVE: CASE EVENT DATE: 20230510
